FAERS Safety Report 14999048 (Version 1)
Quarter: 2018Q2

REPORT INFORMATION
  Report Type: Report from Study
  Country: IT (occurrence: IT)
  Receive Date: 20180612
  Receipt Date: 20180612
  Transmission Date: 20180711
  Serious: Yes (Other)
  Sender: FDA-Public Use
  Company Number: IT-TEVA-2018-IT-904239

PATIENT
  Age: 53 Year
  Sex: Male

DRUGS (4)
  1. INFLUENZA VIRUS VACCINE [Interacting]
     Active Substance: INFLUENZA VIRUS VACCINE
     Indication: IMMUNISATION
     Route: 065
  2. WARFARIN [Interacting]
     Active Substance: WARFARIN
     Indication: ANTICOAGULANT THERAPY
     Route: 065
  3. ASA [Interacting]
     Active Substance: ASPIRIN
     Route: 065
  4. CLOPIDOGREL [Suspect]
     Active Substance: CLOPIDOGREL BISULFATE
     Route: 065

REACTIONS (7)
  - Epistaxis [Recovered/Resolved]
  - Ear haemorrhage [Recovered/Resolved]
  - International normalised ratio increased [Recovered/Resolved]
  - Mouth haemorrhage [Recovered/Resolved]
  - Platelet count decreased [Recovered/Resolved]
  - Drug interaction [Recovered/Resolved]
  - Injection site haemorrhage [Recovered/Resolved]
